FAERS Safety Report 23142631 (Version 4)
Quarter: 2024Q2

REPORT INFORMATION
  Report Type: Report from Study
  Country: CA (occurrence: CA)
  Receive Date: 20231103
  Receipt Date: 20240504
  Transmission Date: 20240716
  Serious: Yes (Other)
  Sender: FDA-Public Use
  Company Number: CA-002147023-NVSC2023CA234501

PATIENT
  Sex: Female

DRUGS (1)
  1. LEQVIO [Suspect]
     Active Substance: INCLISIRAN SODIUM
     Indication: Arteriosclerosis
     Dosage: UNK
     Route: 058
     Dates: start: 20230829, end: 20231129

REACTIONS (4)
  - Pneumonia [Unknown]
  - COVID-19 [Unknown]
  - Hypersensitivity [Unknown]
  - Injection site reaction [Unknown]

NARRATIVE: CASE EVENT DATE: 20230101
